FAERS Safety Report 19864453 (Version 1)
Quarter: 2021Q3

REPORT INFORMATION
  Report Type: Other
  Country: US (occurrence: US)
  Receive Date: 20210921
  Receipt Date: 20210921
  Transmission Date: 20211014
  Serious: No
  Sender: FDA-Public Use
  Company Number: US-ACORDA-ACO_169828_2021

PATIENT
  Sex: Female

DRUGS (1)
  1. INBRIJA [Suspect]
     Active Substance: LEVODOPA
     Indication: PARKINSON^S DISEASE
     Dosage: 42 MILLIGRAM, 2 CAPSULES, FIVE TIMES DAILY AS NEEDED
     Dates: start: 20210120

REACTIONS (5)
  - Asthenia [Unknown]
  - Product packaging difficult to open [Unknown]
  - Tremor [Unknown]
  - Device difficult to use [Unknown]
  - Freezing phenomenon [Unknown]
